FAERS Safety Report 6461937-5 (Version None)
Quarter: 2009Q4

REPORT INFORMATION
  Report Type: 
  Country: None (occurrence: None)
  Receive Date: 20091024
  Receipt Date: 20091109
  Transmission Date: 20100525
  Serious: Yes (Hospitalization, Other)
  Sender: FDA-Public Use
  Company Number: 2009AC000038

PATIENT
  Age: 46 Year
  Sex: Female

DRUGS (24)
  1. DIGOXIN [Suspect]
     Indication: HEART RATE IRREGULAR
     Dosage: 0.125 MG; QD; PO
     Route: 048
  2. ISOSORBIDE [Concomitant]
  3. LOTREL [Concomitant]
  4. ANTIVERT [Concomitant]
  5. OMNICEF [Concomitant]
  6. SPIRONOLACTONE [Concomitant]
  7. NORVASC [Concomitant]
  8. FOLIC ACID [Concomitant]
  9. ASPIRIN [Concomitant]
  10. CLONIDINE [Concomitant]
  11. PLAVIX [Concomitant]
  12. BENICAR [Concomitant]
  13. LEXAPRO [Concomitant]
  14. COREG [Concomitant]
  15. IMDUR [Concomitant]
  16. ZOCOR [Concomitant]
  17. ALDACTONE [Concomitant]
  18. LASIX [Concomitant]
  19. MAGNESIUM OXIDE [Concomitant]
  20. LOTENSIN [Concomitant]
  21. COUMADIN [Concomitant]
  22. HEPARIN [Concomitant]
  23. DOBUTAMINE HCL [Concomitant]
  24. AGGRENOX [Concomitant]

REACTIONS (18)
  - ANXIETY [None]
  - APHASIA [None]
  - CARDIAC FAILURE CONGESTIVE [None]
  - CAROTID ARTERY STENOSIS [None]
  - CEREBROVASCULAR ACCIDENT [None]
  - CONGESTIVE CARDIOMYOPATHY [None]
  - DYSPHAGIA [None]
  - ECONOMIC PROBLEM [None]
  - GAIT DISTURBANCE [None]
  - HEMIPARESIS [None]
  - HYPERTENSION [None]
  - HYPOAESTHESIA [None]
  - MULTIPLE INJURIES [None]
  - PAIN [None]
  - PARAESTHESIA [None]
  - PULMONARY OEDEMA [None]
  - PYREXIA [None]
  - THERAPEUTIC AGENT TOXICITY [None]
